FAERS Safety Report 7092578-7 (Version None)
Quarter: 2010Q4

REPORT INFORMATION
  Report Type: 
  Country: None (occurrence: None)
  Receive Date: 20101110
  Receipt Date: 20101026
  Transmission Date: 20110411
  Serious: Yes (Hospitalization, Other)
  Sender: FDA-Public Use
  Company Number: NL-BAYER-201042148GPV

PATIENT
  Age: 43 Year
  Sex: Female
  Weight: 85 kg

DRUGS (3)
  1. MIRENA [Suspect]
     Indication: MENORRHAGIA
     Route: 015
     Dates: start: 20071101, end: 20090601
  2. ANTIDEPRESSANT (NOS) [Concomitant]
     Dosage: INCREASING THE DOSE
  3. ANTI PSYCHOTIC MEDICATIONS [Concomitant]

REACTIONS (13)
  - AFFECT LABILITY [None]
  - ALOPECIA [None]
  - ANXIETY [None]
  - BREAST CYST [None]
  - DECREASED APPETITE [None]
  - DEPRESSED MOOD [None]
  - DEPRESSION [None]
  - HYPERHIDROSIS [None]
  - LIBIDO DECREASED [None]
  - NERVOUSNESS [None]
  - PANIC REACTION [None]
  - SUICIDE ATTEMPT [None]
  - WEIGHT DECREASED [None]
